FAERS Safety Report 9202019 (Version 2)
Quarter: 2013Q2

REPORT INFORMATION
  Report Type: Spontaneous
  Country: US (occurrence: US)
  Receive Date: 20130401
  Receipt Date: 20130411
  Transmission Date: 20140414
  Serious: Yes (Other)
  Sender: FDA-Public Use
  Company Number: US-PERRIGO-13US003111

PATIENT
  Age: 63 Year
  Sex: Female
  Weight: 136.5 kg

DRUGS (4)
  1. NIGHTTIME ORIGINAL 6HOUR 335 [Suspect]
     Indication: COUGH
     Dosage: 30 ML, SINGLE
     Route: 048
     Dates: start: 20130320, end: 20130320
  2. NIGHTTIME ORIGINAL 6HOUR 335 [Suspect]
     Indication: INSOMNIA
  3. LAMICTAL [Concomitant]
     Indication: MENTAL DISORDER
     Dosage: UNK
     Route: 065
  4. ASPIRIN [Concomitant]
     Indication: BACK PAIN
     Dosage: UNK
     Route: 048

REACTIONS (10)
  - Loss of consciousness [Recovered/Resolved]
  - Disorientation [Recovered/Resolved]
  - Irritability [Not Recovered/Not Resolved]
  - Confusional state [Recovered/Resolved]
  - Dry mouth [Recovered/Resolved]
  - Lip dry [Recovered/Resolved]
  - Dry throat [Recovered/Resolved]
  - Pulmonary congestion [Recovered/Resolved]
  - Sputum retention [Recovered/Resolved]
  - Dysphagia [Recovered/Resolved]
